FAERS Safety Report 15902556 (Version 10)
Quarter: 2020Q2

REPORT INFORMATION
  Report Type: Report from Study
  Country: GB (occurrence: GB)
  Receive Date: 20190201
  Receipt Date: 20200612
  Transmission Date: 20200713
  Serious: Yes (Other)
  Sender: FDA-Public Use
  Company Number: PHHY2018GB072875

PATIENT
  Sex: Female

DRUGS (4)
  1. LEVOTHYROXINE. [Suspect]
     Active Substance: LEVOTHYROXINE
     Dosage: 125 MG, UNK
     Route: 065
  2. LEVOTHYROXINE. [Suspect]
     Active Substance: LEVOTHYROXINE
     Dosage: 175 MG, UNK
     Route: 065
  3. SANDOSTATIN LAR DEPOT [Suspect]
     Active Substance: OCTREOTIDE ACETATE
     Indication: NEUROENDOCRINE TUMOUR
     Dosage: 30 MG, QMO (EVERY 4 WEEKS)
     Route: 030
     Dates: start: 20170705
  4. LEVOTHYROXINE. [Suspect]
     Active Substance: LEVOTHYROXINE
     Indication: PRODUCT USED FOR UNKNOWN INDICATION
     Dosage: 200 MG, UNK
     Route: 065

REACTIONS (24)
  - Motor dysfunction [Unknown]
  - Confusional state [Unknown]
  - Malaise [Unknown]
  - Thyroxine decreased [Unknown]
  - Dry skin [Unknown]
  - Fungal infection [Unknown]
  - Contusion [Unknown]
  - Anaemia [Unknown]
  - Cellulitis [Recovering/Resolving]
  - Memory impairment [Unknown]
  - Tremor [Unknown]
  - Balance disorder [Unknown]
  - Musculoskeletal pain [Unknown]
  - Thyroid disorder [Unknown]
  - Nervousness [Unknown]
  - Head discomfort [Not Recovered/Not Resolved]
  - Sciatica [Unknown]
  - Fall [Unknown]
  - Needle issue [Unknown]
  - Foot fracture [Unknown]
  - Asthenia [Unknown]
  - Lower respiratory tract infection [Unknown]
  - Panic attack [Not Recovered/Not Resolved]
  - Headache [Not Recovered/Not Resolved]
